FAERS Safety Report 21634967 (Version 2)
Quarter: 2023Q1

REPORT INFORMATION
  Report Type: Spontaneous
  Country: DE (occurrence: DE)
  Receive Date: 20221123
  Receipt Date: 20230103
  Transmission Date: 20230418
  Serious: Yes (Other)
  Sender: FDA-Public Use
  Company Number: None

PATIENT
  Age: 26 Year
  Sex: Male

DRUGS (11)
  1. CARBAMAZEPINE [Suspect]
     Active Substance: CARBAMAZEPINE
     Indication: Epilepsy
     Dosage: 80 MILLIGRAM, QD (400 MILLIGRAM, 2X/DAY (BID))
     Route: 065
     Dates: start: 2008
  2. TOPIRAMATE [Suspect]
     Active Substance: TOPIRAMATE
     Indication: Epilepsy
     Dosage: 200 MILLIGRAM, QD, 100 MILLIGRAM, 2X/DAY (BID)
     Route: 065
     Dates: start: 2008
  3. VIMPAT [Suspect]
     Active Substance: LACOSAMIDE
     Indication: Epilepsy
     Dosage: 400 MILLIGRAM, QD (DAILY)
     Route: 065
     Dates: start: 2015
  4. VIMPAT [Suspect]
     Active Substance: LACOSAMIDE
     Dosage: 300 MILLIGRAM
     Route: 065
  5. PHENYTOIN [Suspect]
     Active Substance: PHENYTOIN
     Indication: Epilepsy
     Dosage: 400 MILLIGRAM, QD 200 MILLIGRAM, 2X/DAY (BID)
     Route: 065
     Dates: start: 2008
  6. KEPPRA [Suspect]
     Active Substance: LEVETIRACETAM
     Indication: Epilepsy
     Dosage: 2000 MILLIGRAM, QD (1000 MILLIGRAM, 2X/DAY (BID))
     Route: 065
     Dates: start: 2008, end: 2015
  7. KEPPRA [Suspect]
     Active Substance: LEVETIRACETAM
     Dosage: 3000 MILLIGRAM, QD (DAILY)
     Route: 065
     Dates: start: 2015
  8. FYCOMPA [Concomitant]
     Active Substance: PERAMPANEL
     Indication: Epilepsy
     Dosage: 4 MILLIGRAM, OUTPATIENT INCREASE TO 12 MG
     Route: 065
  9. OXCARBAZEPINE [Concomitant]
     Active Substance: OXCARBAZEPINE
     Indication: Epilepsy
     Dosage: 1800 MILLIGRAM, QD (ONCE DAILY)
     Route: 065
  10. VALPROIC ACID [Concomitant]
     Active Substance: VALPROIC ACID
     Indication: Epilepsy
     Dosage: 3000 MILLIGRAM, QD, ONCE DAILY (QD)
     Route: 065
     Dates: start: 2015
  11. Apydan [Concomitant]
     Indication: Epilepsy
     Dosage: 2100 MILLIGRAM, UNK
     Route: 065
     Dates: start: 201906

REACTIONS (2)
  - Tonic convulsion [Unknown]
  - Multiple-drug resistance [Unknown]
